FAERS Safety Report 4379438-7 (Version None)
Quarter: 2004Q2

REPORT INFORMATION
  Report Type: 
  Country: None (occurrence: None)
  Receive Date: 20040601
  Receipt Date: 20040414
  Transmission Date: 20050107
  Serious: No
  Sender: FDA-Public Use
  Company Number: WAES 0404USA01804

PATIENT
  Age: 46 Year
  Sex: Male
  Weight: 114.76 kg

DRUGS (21)
  1. ZETIA [Suspect]
     Indication: DYSLIPIDAEMIA
     Dosage: 10MG/DAILY/PO
     Route: 048
     Dates: start: 20030403, end: 20040402
  2. ZOCOR [Suspect]
     Indication: DYSLIPIDAEMIA
     Dosage: SEE IMAGE
     Route: 048
     Dates: end: 20040402
  3. ZOCOR [Suspect]
     Indication: HYPERTRIGLYCERIDAEMIA
     Dosage: SEE IMAGE
     Route: 048
     Dates: end: 20040402
  4. TOPROL-XL [Suspect]
     Dosage: SEE IMAGE
     Route: 048
     Dates: end: 20030611
  5. TOPROL-XL [Suspect]
     Dosage: SEE IMAGE
     Route: 048
     Dates: start: 20030611
  6. LIPITOR [Suspect]
     Dosage: 200 MG/DAILY/PO
     Route: 048
     Dates: end: 20030611
  7. ALLEGRA [Concomitant]
  8. BEXTRA [Concomitant]
  9. GLUCOTROL [Concomitant]
  10. GLUCOVANCE [Concomitant]
  11. HYDRODIURIL [Concomitant]
  12. LOTREL [Concomitant]
  13. NEURONTIN [Concomitant]
  14. NEXIUM [Concomitant]
  15. PAXIL [Concomitant]
  16. PRILOSEC [Concomitant]
  17. ROBAXIN [Concomitant]
  18. VIOXX [Concomitant]
  19. XANAX [Concomitant]
  20. ZYPREXA [Concomitant]
  21. ASPIRIN [Concomitant]

REACTIONS (11)
  - ASTHENIA [None]
  - DYSPEPSIA [None]
  - ERUCTATION [None]
  - FATIGUE [None]
  - HYPOTENSION [None]
  - MUSCLE CRAMP [None]
  - MUSCULAR WEAKNESS [None]
  - MYALGIA [None]
  - NAUSEA [None]
  - PAIN IN EXTREMITY [None]
  - SLEEP APNOEA SYNDROME [None]
